FAERS Safety Report 22059345 (Version 1)
Quarter: 2023Q1

REPORT INFORMATION
  Report Type: Spontaneous
  Country: US (occurrence: None)
  Receive Date: 20230302
  Receipt Date: 20230302
  Transmission Date: 20230417
  Serious: Yes (Disabling)
  Sender: FDA-Public Use
  Company Number: None

PATIENT
  Age: 22 Year
  Sex: Female
  Weight: 56.25 kg

DRUGS (4)
  1. ARTIFICIAL TEARS LUBRICANT EYE DROPS (CARBOXYMETHYLCELLULOSE SODIUM) [Suspect]
     Active Substance: CARBOXYMETHYLCELLULOSE SODIUM
     Indication: Dry eye
     Dosage: OTHER QUANTITY : 1 DROP(S);?FREQUENCY : AS NEEDED;?
     Route: 047
     Dates: start: 20221031, end: 20221118
  2. APRI 28 DAY [Concomitant]
     Active Substance: DESOGESTREL\ETHINYL ESTRADIOL
  3. desogestrel and ethinyl estradiol kit [Concomitant]
  4. ALBUTEROL [Concomitant]
     Active Substance: ALBUTEROL

REACTIONS (6)
  - Ocular hyperaemia [None]
  - Vision blurred [None]
  - Swelling [None]
  - Pain [None]
  - Secretion discharge [None]
  - Photophobia [None]

NARRATIVE: CASE EVENT DATE: 20221118
